FAERS Safety Report 22354988 (Version 1)
Quarter: 2023Q2

REPORT INFORMATION
  Report Type: Spontaneous
  Country: NL (occurrence: NL)
  Receive Date: 20230523
  Receipt Date: 20230523
  Transmission Date: 20230722
  Serious: Yes (Other)
  Sender: FDA-Public Use
  Company Number: NL-ALKEM LABORATORIES LIMITED-NL-ALKEM-2023-05381

PATIENT
  Age: 55 Year
  Sex: Male

DRUGS (5)
  1. METOPROLOL SUCCINATE [Suspect]
     Active Substance: METOPROLOL SUCCINATE
     Indication: Angina pectoris
     Dosage: UNK
     Route: 065
  2. VENLAFAXINE [Suspect]
     Active Substance: VENLAFAXINE HYDROCHLORIDE
     Indication: Depressive symptom
     Dosage: UNK (EXTENDED RELEASE (XR)), STOPPED TAKING GRADUALLY OVER 1,5 MONTHS (75 MG TO 37.5 MG TO 0 MG)
     Route: 065
  3. ASPIRIN [Concomitant]
     Active Substance: ASPIRIN
     Indication: Angina pectoris
     Dosage: UNK
     Route: 065
  4. PLAVIX [Concomitant]
     Active Substance: CLOPIDOGREL BISULFATE
     Indication: Angina pectoris
     Dosage: UNK
     Route: 065
  5. SIMVASTATIN [Concomitant]
     Active Substance: SIMVASTATIN
     Indication: Angina pectoris
     Dosage: UNK
     Route: 065

REACTIONS (14)
  - Erectile dysfunction [Unknown]
  - Bladder pain [Unknown]
  - Electric shock sensation [Unknown]
  - Hypertonic bladder [Unknown]
  - Sexual dysfunction [Unknown]
  - Urinary incontinence [Unknown]
  - Withdrawal syndrome [Unknown]
  - Anorgasmia [Unknown]
  - Ejaculation delayed [Unknown]
  - Penile size reduced [Unknown]
  - Condition aggravated [Unknown]
  - Hyperhidrosis [Unknown]
  - Libido decreased [Unknown]
  - Pollakiuria [Unknown]
